FAERS Safety Report 21346077 (Version 1)
Quarter: 2022Q3

REPORT INFORMATION
  Report Type: Spontaneous
  Country: FR (occurrence: FR)
  Receive Date: 20220917
  Receipt Date: 20220917
  Transmission Date: 20221026
  Serious: Yes (Other)
  Sender: FDA-Public Use
  Company Number: FR-AFSSAPS-AN20221972

PATIENT
  Age: 60 Year
  Sex: Male
  Weight: 131.8 kg

DRUGS (9)
  1. PRAVASTATIN [Suspect]
     Active Substance: PRAVASTATIN
     Indication: Prophylaxis
     Dosage: 40 MILLIGRAM, ONCE A DAY
     Route: 048
     Dates: end: 20220720
  2. LOXAPINE SUCCINATE [Suspect]
     Active Substance: LOXAPINE SUCCINATE
     Indication: Schizophrenia
     Dosage: 50 MILLIGRAM, ONCE A DAY
     Route: 048
     Dates: end: 20220723
  3. KARDEGIC [Concomitant]
     Active Substance: ASPIRIN DL-LYSINE
     Indication: Prophylaxis
     Dosage: 75 MILLIGRAM, ONCE A DAY
     Route: 048
     Dates: end: 20220719
  4. LISINOPRIL [Concomitant]
     Active Substance: LISINOPRIL
     Indication: Product used for unknown indication
     Dosage: 20 MILLIGRAM, ONCE A DAY
     Route: 048
     Dates: end: 20220719
  5. METFORMIN HYDROCHLORIDE [Concomitant]
     Active Substance: METFORMIN HYDROCHLORIDE
     Indication: Insulin-requiring type 2 diabetes mellitus
     Dosage: 3000 MILLIGRAM, ONCE A DAY
     Route: 048
     Dates: end: 20220719
  6. MIANSERIN HYDROCHLORIDE [Concomitant]
     Active Substance: MIANSERIN HYDROCHLORIDE
     Indication: Schizophrenia
     Dosage: 60 MILLIGRAM, ONCE A DAY
     Route: 048
  7. INSULIN ASPART [Concomitant]
     Active Substance: INSULIN ASPART
     Indication: Insulin-requiring type 2 diabetes mellitus
     Dosage: 44 INTERNATIONAL UNIT, ONCE A DAY
     Route: 058
  8. LEVOMEPROMAZINE [Suspect]
     Active Substance: LEVOMEPROMAZINE
     Indication: Schizophrenia
     Dosage: 200 MILLIGRAM, ONCE A DAY
     Route: 048
  9. TOUJEO [Concomitant]
     Active Substance: INSULIN GLARGINE
     Indication: Insulin-requiring type 2 diabetes mellitus
     Dosage: 92 INTERNATIONAL UNIT, ONCE A DAY
     Route: 058

REACTIONS (2)
  - Rhabdomyolysis [Recovering/Resolving]
  - Pyrexia [Recovered/Resolved]

NARRATIVE: CASE EVENT DATE: 20220719
